FAERS Safety Report 17478270 (Version 1)
Quarter: 2020Q1

REPORT INFORMATION
  Report Type: Report from Study
  Country: US (occurrence: US)
  Receive Date: 20200228
  Receipt Date: 20200228
  Transmission Date: 20200409
  Serious: Yes (Hospitalization)
  Sender: FDA-Public Use
  Company Number: US-ENDO PHARMACEUTICALS INC-2019-111095

PATIENT
  Age: 17 Year
  Sex: Male
  Weight: 68 kg

DRUGS (9)
  1. METHOTREXATE SODIUM. [Suspect]
     Active Substance: METHOTREXATE SODIUM
     Dosage: 37.5 MG, WEEKLY
     Route: 048
     Dates: start: 20191216
  2. MERCAPTOPURINE. [Suspect]
     Active Substance: MERCAPTOPURINE
     Dosage: 50MG MON-WED-FRI, 25MG SUN-TUE-THURS-SAT
     Route: 048
     Dates: start: 20191216
  3. METHOTREXATE SODIUM. [Suspect]
     Active Substance: METHOTREXATE SODIUM
     Indication: LYMPHOCYTIC LEUKAEMIA
     Dosage: 37.5 MG, WEEKLY
     Route: 048
     Dates: start: 20191021, end: 20191130
  4. MERCAPTOPURINE. [Suspect]
     Active Substance: MERCAPTOPURINE
     Indication: LYMPHOCYTIC LEUKAEMIA
     Dosage: 150MG/125 MG, BID
     Route: 048
     Dates: start: 20191014, end: 20191130
  5. METHOTREXATE. [Suspect]
     Active Substance: METHOTREXATE
     Indication: LYMPHOCYTIC LEUKAEMIA
     Dosage: 95 MG, ONCE (DAY 1 AND 29)
     Route: 037
     Dates: start: 20191014
  6. INCB018424 (RUXOLITINIB) [Suspect]
     Active Substance: RUXOLITINIB
     Indication: LYMPHOCYTIC LEUKAEMIA
     Dosage: 95MG, DAILY (14 DAYS ON/OFF)
     Route: 048
     Dates: start: 20191014, end: 20191209
  7. VINCRISTINE [Suspect]
     Active Substance: VINCRISTINE
     Indication: LYMPHOCYTIC LEUKAEMIA
     Dosage: 2 MG ONCE (DAY 1, 29, 57)
     Route: 042
     Dates: start: 20191014
  8. INCB018424 (RUXOLITINIB) [Suspect]
     Active Substance: RUXOLITINIB
     Dosage: 95MG, DAILY (14 DAYS ON/OFF)
     Route: 048
     Dates: start: 20191216
  9. PREDNISONE. [Suspect]
     Active Substance: PREDNISONE
     Indication: LYMPHOCYTIC LEUKAEMIA
     Dosage: 40MG/35 MG, BID (5 DAYS)
     Route: 048
     Dates: start: 20191014

REACTIONS (2)
  - Oesophagitis [Recovered/Resolved]
  - Pancreatitis [Recovered/Resolved]

NARRATIVE: CASE EVENT DATE: 20191129
